FAERS Safety Report 16311017 (Version 3)
Quarter: 2019Q2

REPORT INFORMATION
  Report Type: Spontaneous
  Country: CH (occurrence: CH)
  Receive Date: 20190514
  Receipt Date: 20190517
  Transmission Date: 20190711
  Serious: Yes (Hospitalization)
  Sender: FDA-Public Use
  Company Number: CH-FRESENIUS KABI-FK201905416

PATIENT
  Age: 15 Year
  Sex: Male

DRUGS (5)
  1. ROCURONIUM [Suspect]
     Active Substance: ROCURONIUM BROMIDE
     Indication: GENERAL ANAESTHESIA
     Dosage: UNKNOWN
     Route: 065
  2. FENTANYL (MANUFACTURER UNKNOWN) [Suspect]
     Active Substance: FENTANYL
     Indication: GENERAL ANAESTHESIA
     Dosage: UNKNOWN
     Route: 065
  3. DESFLURANE. [Suspect]
     Active Substance: DESFLURANE
     Indication: GENERAL ANAESTHESIA
     Dosage: UNKNOWN
     Route: 065
  4. SEVOFLURANE. [Suspect]
     Active Substance: SEVOFLURANE
     Indication: GENERAL ANAESTHESIA
     Dosage: UNKNOWN
     Route: 065
  5. THIOPENTAL SODIUM. [Suspect]
     Active Substance: THIOPENTAL SODIUM
     Indication: GENERAL ANAESTHESIA

REACTIONS (2)
  - Electrolyte imbalance [Recovering/Resolving]
  - Diabetes insipidus [Recovering/Resolving]
